FAERS Safety Report 24569850 (Version 1)
Quarter: 2024Q4

REPORT INFORMATION
  Report Type: Spontaneous
  Country: RO (occurrence: RO)
  Receive Date: 20241031
  Receipt Date: 20241031
  Transmission Date: 20250115
  Serious: Yes (Other)
  Sender: MERCK
  Company Number: RO-009507513-2410ROU011929

PATIENT
  Age: 74 Year
  Sex: Male

DRUGS (5)
  1. KEYTRUDA [Suspect]
     Active Substance: PEMBROLIZUMAB
     Indication: Laryngeal neoplasm
     Dosage: 200 MILLIGRAM, Q3W
     Dates: start: 20231218
  2. CISPLATIN [Suspect]
     Active Substance: CISPLATIN
     Indication: Laryngeal neoplasm
     Dosage: 100 MILLIGRAM/SQ. METER, Q3W
     Dates: start: 20231218, end: 202404
  3. FLUOROURACIL [Suspect]
     Active Substance: FLUOROURACIL
     Indication: Laryngeal neoplasm
     Dosage: 1000 MILLIGRAM/SQ. METER, CONTINUOUS, 4 DAYS EVERY 3 WEEKS
     Dates: start: 20231218, end: 202404
  4. AKYNZEO (NETUPITANT\PALONOSETRON HYDROCHLORIDE) [Concomitant]
     Active Substance: NETUPITANT\PALONOSETRON HYDROCHLORIDE
     Indication: Prophylaxis of nausea and vomiting
     Dosage: UNK
     Dates: start: 202312
  5. PEGFILGRASTIM [Concomitant]
     Active Substance: PEGFILGRASTIM
     Indication: Prophylaxis
     Dosage: UNK
     Dates: start: 202312

REACTIONS (3)
  - Pseudomonas infection [Unknown]
  - Pseudomonas infection [Unknown]
  - Therapy partial responder [Unknown]

NARRATIVE: CASE EVENT DATE: 20240402
